FAERS Safety Report 13099173 (Version 3)
Quarter: 2018Q3

REPORT INFORMATION
  Report Type: Report from Study
  Country: IL (occurrence: IL)
  Receive Date: 20170109
  Receipt Date: 20180704
  Transmission Date: 20181010
  Serious: Yes (Other)
  Sender: FDA-Public Use
  Company Number: IL-JNJFOC-20161103074

PATIENT
  Age: 53 Year
  Sex: Male

DRUGS (2)
  1. OMEPRADEX [Concomitant]
     Active Substance: OMEPRAZOLE
     Route: 065
  2. STELARA [Suspect]
     Active Substance: USTEKINUMAB
     Indication: PSORIASIS
     Route: 058

REACTIONS (6)
  - Impaired healing [Not Recovered/Not Resolved]
  - Pneumonia [Recovered/Resolved]
  - Psoriasis [Not Recovered/Not Resolved]
  - Influenza [Recovered/Resolved]
  - Viral infection [Recovered/Resolved]
  - Vitamin D decreased [Not Recovered/Not Resolved]

NARRATIVE: CASE EVENT DATE: 201612
